FAERS Safety Report 7797978-5 (Version None)
Quarter: 2011Q4

REPORT INFORMATION
  Report Type: 
  Country: None (occurrence: None)
  Receive Date: 20111005
  Receipt Date: 20110927
  Transmission Date: 20120403
  Serious: Yes (Other)
  Sender: FDA-Public Use
  Company Number: JP-GLAXOSMITHKLINE-B0736157A

PATIENT
  Sex: Female

DRUGS (4)
  1. LITHIUM CARBONATE [Concomitant]
     Indication: BIPOLAR DISORDER
     Dosage: 600MG PER DAY
     Route: 048
     Dates: start: 20110707, end: 20110721
  2. CYMBALTA [Concomitant]
     Indication: DEPRESSION
     Dosage: 60MG PER DAY
     Route: 048
     Dates: start: 20110707, end: 20110721
  3. ZOLPIDEM [Concomitant]
     Indication: INSOMNIA
     Dosage: 10MG PER DAY
     Route: 048
     Dates: start: 20080112
  4. LAMICTAL [Suspect]
     Indication: DEPRESSION
     Dosage: 25MG PER DAY
     Route: 048
     Dates: start: 20110707, end: 20110721

REACTIONS (7)
  - HEADACHE [None]
  - PRURITUS [None]
  - RASH GENERALISED [None]
  - DRUG ERUPTION [None]
  - MALAISE [None]
  - OCULAR HYPERAEMIA [None]
  - PYREXIA [None]
